FAERS Safety Report 6445517-3 (Version None)
Quarter: 2009Q4

REPORT INFORMATION
  Report Type: 
  Country: None (occurrence: None)
  Receive Date: 20091118
  Receipt Date: 20091110
  Transmission Date: 20100525
  Serious: Yes (Hospitalization, Other)
  Sender: FDA-Public Use
  Company Number: CA-ABBOTT-09P-028-0608195-00

PATIENT
  Sex: Female
  Weight: 59.02 kg

DRUGS (5)
  1. HUMIRA [Suspect]
     Indication: CROHN'S DISEASE
     Route: 058
     Dates: start: 20090810, end: 20090929
  2. PURINETHOL [Concomitant]
     Indication: DRUG USE FOR UNKNOWN INDICATION
  3. CALCIUM [Concomitant]
     Indication: DRUG USE FOR UNKNOWN INDICATION
  4. VITAMIN D [Concomitant]
     Indication: DRUG USE FOR UNKNOWN INDICATION
  5. PREDNISONE [Concomitant]
     Indication: CROHN'S DISEASE

REACTIONS (6)
  - DEHYDRATION [None]
  - DIARRHOEA [None]
  - OROPHARYNGEAL PAIN [None]
  - PYREXIA [None]
  - VOMITING [None]
  - WHITE BLOOD CELL COUNT INCREASED [None]
